FAERS Safety Report 8216089-8 (Version None)
Quarter: 2012Q1

REPORT INFORMATION
  Report Type: 
  Country: None (occurrence: None)
  Receive Date: 20120316
  Receipt Date: 20120308
  Transmission Date: 20120608
  Serious: Yes (Hospitalization)
  Sender: FDA-Public Use
  Company Number: US-BAYER-2012-023911

PATIENT
  Age: 41 Year
  Sex: Female

DRUGS (3)
  1. YAZ [Suspect]
  2. ADVAIR DISKUS 100/50 [Concomitant]
     Dosage: 100-50MCG TWICE A DAY
     Route: 045
  3. HYDROCHLOROTHIAZIDE [Concomitant]
     Dosage: 25 MG, ONCE
     Route: 048

REACTIONS (1)
  - DEEP VEIN THROMBOSIS [None]
